FAERS Safety Report 13310495 (Version 1)
Quarter: 2017Q1

REPORT INFORMATION
  Report Type: Spontaneous
  Country: US (occurrence: US)
  Receive Date: 20170309
  Receipt Date: 20170309
  Transmission Date: 20170428
  Serious: Yes (Death, Hospitalization)
  Sender: FDA-Public Use
  Company Number: US-PFIZER INC-2017103316

PATIENT
  Age: 83 Year
  Sex: Male
  Weight: 79 kg

DRUGS (1)
  1. XALKORI [Suspect]
     Active Substance: CRIZOTINIB
     Indication: LUNG CARCINOMA CELL TYPE UNSPECIFIED STAGE IV
     Dosage: 250 MG, 2X/DAY
     Route: 048
     Dates: start: 20160526

REACTIONS (3)
  - Cerebrovascular accident [Fatal]
  - Oedema peripheral [Unknown]
  - Body height decreased [Unknown]

NARRATIVE: CASE EVENT DATE: 20160911
